FAERS Safety Report 12186239 (Version 1)
Quarter: 2016Q1

REPORT INFORMATION
  Report Type: Spontaneous
  Country: IT (occurrence: IT)
  Receive Date: 20160317
  Receipt Date: 20160317
  Transmission Date: 20160526
  Serious: Yes (Other)
  Sender: FDA-Public Use
  Company Number: IT-THROMBOGENICS NV-SPO-2016-2147

PATIENT
  Age: 46 Year
  Sex: Male

DRUGS (1)
  1. JETREA [Suspect]
     Active Substance: OCRIPLASMIN
     Indication: VITREOUS ADHESIONS
     Dosage: 0.125 MG, ONE TIME DOSE
     Route: 031
     Dates: start: 20160302, end: 20160302

REACTIONS (6)
  - Lacrimation increased [Recovered/Resolved]
  - Cyclitis [Recovered/Resolved]
  - Vitreous floaters [Unknown]
  - Ciliary muscle spasm [Recovered/Resolved]
  - Eye pain [Recovered/Resolved]
  - Ocular hyperaemia [Recovered/Resolved]

NARRATIVE: CASE EVENT DATE: 20160302
